FAERS Safety Report 10060636 (Version 1)
Quarter: 2014Q2

REPORT INFORMATION
  Report Type: Spontaneous
  Country: US (occurrence: US)
  Receive Date: 20140404
  Receipt Date: 20140404
  Transmission Date: 20141212
  Serious: No
  Sender: FDA-Public Use
  Company Number: US-BAYER-2014-050945

PATIENT
  Age: 77 Year
  Sex: Male
  Weight: 70.3 kg

DRUGS (6)
  1. ALEVE CAPLET [Suspect]
     Indication: HYPOAESTHESIA
     Dosage: 1 DF, QD
     Route: 048
     Dates: start: 2013, end: 20140328
  2. ALEVE CAPLET [Suspect]
     Indication: HYPOAESTHESIA
  3. ALEVE CAPLET [Suspect]
     Indication: PAIN
  4. IRON [Concomitant]
  5. SUPER B COMPLEX [VIT C,VIT H,B5,CHOL,B12,B9,INOSIT,B3,B6,B2,B1] [Concomitant]
  6. FOLIC ACID [Concomitant]

REACTIONS (2)
  - Incorrect drug administration duration [None]
  - Intentional product misuse [None]
